FAERS Safety Report 24689590 (Version 1)
Quarter: 2024Q4

REPORT INFORMATION
  Report Type: Spontaneous
  Country: US (occurrence: US)
  Receive Date: 20241203
  Receipt Date: 20241203
  Transmission Date: 20250114
  Serious: Yes (Hospitalization, Other)
  Sender: RANBAXY
  Company Number: US-SUN PHARMACEUTICAL INDUSTRIES LTD-2024R1-481896

PATIENT
  Age: 24 Year
  Sex: Female

DRUGS (5)
  1. ACARBOSE [Suspect]
     Active Substance: ACARBOSE
     Indication: Postprandial hypoglycaemia
     Dosage: 25 MILLIGRAM, TID
     Route: 065
  2. DEXTROSE [Suspect]
     Active Substance: DEXTROSE MONOHYDRATE
     Indication: Postprandial hypoglycaemia
     Dosage: 5 PERCENT
     Route: 065
  3. METFORMIN [Suspect]
     Active Substance: METFORMIN HYDROCHLORIDE
     Indication: Postprandial hypoglycaemia
     Dosage: UNK
     Route: 065
  4. OCTREOTIDE [Suspect]
     Active Substance: OCTREOTIDE
     Indication: Postprandial hypoglycaemia
     Dosage: 50 MICROGRAM
     Route: 058
  5. SODIUM CHLORIDE [Suspect]
     Active Substance: SODIUM CHLORIDE
     Indication: Postprandial hypoglycaemia
     Dosage: 0.9 PERCENT
     Route: 065

REACTIONS (1)
  - Disease recurrence [Unknown]
